FAERS Safety Report 11025875 (Version 1)
Quarter: 2015Q2

REPORT INFORMATION
  Report Type: Spontaneous
  Country: US (occurrence: None)
  Receive Date: 20150413
  Receipt Date: 20150413
  Transmission Date: 20150821
  Serious: Yes (Other)
  Sender: FDA-Public Use
  Company Number: None

PATIENT
  Age: 73 Year
  Sex: Female
  Weight: 77.11 kg

DRUGS (17)
  1. POTASSIUM CHLORIDE (K-DUR) [Concomitant]
  2. LISINOPRIL (PRINIVIL,ZESTRIL) [Concomitant]
  3. LOVENOX [Suspect]
     Active Substance: ENOXAPARIN SODIUM
     Indication: THROMBOSIS
     Dosage: 80 MG THEN .73 MLS, ONCE A DAY, INJECITON INTO BELLY
     Dates: start: 20140713, end: 20140717
  4. PANTOPRAZOLE (PROTONIX) [Concomitant]
  5. SUCRALFATE (CARAFATE) [Concomitant]
  6. DOCUSATE SODIUM (COLACE) [Concomitant]
  7. SALINE (OCEAN) [Concomitant]
  8. WARFARIN (COUMADIN) [Concomitant]
  9. TYLENOL [Concomitant]
     Active Substance: ACETAMINOPHEN
  10. LECITHIN [Concomitant]
     Active Substance: LECITHIN
  11. MAGNESIUM HYDROXIDE (MILK OF MAGNESIA) [Concomitant]
  12. SIMVASTATIN. [Concomitant]
     Active Substance: SIMVASTATIN
  13. BOSWELLIA-GLUCOSAMINE-VIT D (GLUCOSAMINE COMPLEX PO) [Concomitant]
  14. FUROSEMIDE (LASIX) [Concomitant]
  15. TRAMADOL (ULTRAM) [Concomitant]
  16. NIFEDIPINE (PROCARDIA XL) [Concomitant]
  17. HEPARIN [Concomitant]
     Active Substance: HEPARIN SODIUM

REACTIONS (3)
  - Injection site scar [None]
  - Keloid scar [None]
  - Pain [None]

NARRATIVE: CASE EVENT DATE: 20140713
